FAERS Safety Report 5727573-0 (Version None)
Quarter: 2008Q2

REPORT INFORMATION
  Report Type: 
  Country: None (occurrence: None)
  Receive Date: 20080505
  Receipt Date: 20080429
  Transmission Date: 20081010
  Serious: Yes (Other)
  Sender: FDA-Public Use
  Company Number: US-SANOFI-SYNTHELABO-A03200801611

PATIENT
  Age: 52 Year
  Sex: Male

DRUGS (4)
  1. CAPECITABINE [Concomitant]
     Indication: DRUG USE FOR UNKNOWN INDICATION
     Dosage: UNK
     Route: 065
     Dates: start: 20060901, end: 20061001
  2. ERLOTINIB [Interacting]
     Indication: ADENOCARCINOMA PANCREAS
     Dosage: UNK
     Route: 065
     Dates: start: 20061201
  3. GEMCITABINE [Interacting]
     Indication: ADENOCARCINOMA PANCREAS
     Route: 065
     Dates: start: 20060426, end: 20070101
  4. ELOXATIN [Suspect]
     Indication: ADENOCARCINOMA PANCREAS
     Route: 042
     Dates: start: 20060909, end: 20060909

REACTIONS (1)
  - HEPATITIS [None]
